FAERS Safety Report 25384712 (Version 1)
Quarter: 2025Q2

REPORT INFORMATION
  Report Type: Spontaneous
  Country: FR (occurrence: FR)
  Receive Date: 20250602
  Receipt Date: 20250602
  Transmission Date: 20250716
  Serious: Yes (Hospitalization)
  Sender: DR REDDYS
  Company Number: None

PATIENT
  Age: 12 Year
  Sex: Male
  Weight: 32 kg

DRUGS (9)
  1. CYCLOPHOSPHAMIDE [Suspect]
     Active Substance: CYCLOPHOSPHAMIDE
     Indication: T-cell type acute leukaemia
     Route: 065
     Dates: start: 20250423, end: 20250423
  2. CYTARABINE [Suspect]
     Active Substance: CYTARABINE
     Indication: T-cell type acute leukaemia
     Route: 042
     Dates: start: 20250425, end: 20250428
  3. CYTARABINE [Suspect]
     Active Substance: CYTARABINE
     Route: 042
     Dates: start: 20250502, end: 20250505
  4. THIOGUANINE [Suspect]
     Active Substance: THIOGUANINE
     Indication: T-cell type acute leukaemia
     Route: 048
     Dates: start: 20250423, end: 20250506
  5. METHOTREXATE [Suspect]
     Active Substance: METHOTREXATE
     Indication: T-cell type acute leukaemia
     Route: 029
     Dates: start: 20250425, end: 20250505
  6. CYTARABINE [Suspect]
     Active Substance: CYTARABINE
     Indication: T-cell type acute leukaemia
     Route: 029
     Dates: start: 20250425, end: 20250505
  7. HYDROCORTISONE [Suspect]
     Active Substance: HYDROCORTISONE
     Indication: T-cell type acute leukaemia
     Route: 029
     Dates: start: 20250425, end: 20250505
  8. BACTRIM [Concomitant]
     Active Substance: SULFAMETHOXAZOLE\TRIMETHOPRIM
     Indication: Product used for unknown indication
  9. MORPHINE SULFATE [Concomitant]
     Active Substance: MORPHINE SULFATE
     Indication: Product used for unknown indication

REACTIONS (3)
  - Febrile bone marrow aplasia [Not Recovered/Not Resolved]
  - Staphylococcal sepsis [Not Recovered/Not Resolved]
  - Pneumonia [Not Recovered/Not Resolved]

NARRATIVE: CASE EVENT DATE: 20250502
